FAERS Safety Report 11931141 (Version 2)
Quarter: 2016Q1

REPORT INFORMATION
  Report Type: Spontaneous
  Country: JP (occurrence: JP)
  Receive Date: 20160120
  Receipt Date: 20160205
  Transmission Date: 20160526
  Serious: Yes (Death, Other)
  Sender: FDA-Public Use
  Company Number: PHHY2016JP004974

PATIENT
  Age: 77 Year
  Sex: Male

DRUGS (4)
  1. CILOSTAZOL. [Suspect]
     Active Substance: CILOSTAZOL
     Dosage: 200 MG, UNK
  2. CILOSTAZOL. [Suspect]
     Active Substance: CILOSTAZOL
     Indication: VASOSPASM
     Dosage: 100 MG, QD
     Route: 048
  3. OZAGREL SODIUM [Suspect]
     Indication: VASOSPASM
     Dosage: 80 MG, QD
     Route: 041
  4. FASUDIL [Suspect]
     Active Substance: FASUDIL
     Indication: VASOSPASM
     Dosage: 30 MG, TID
     Route: 042

REACTIONS (5)
  - Cerebral infarction [Fatal]
  - Coma [Unknown]
  - Cerebral haematoma [Fatal]
  - Blood pressure decreased [Fatal]
  - Brain herniation [Fatal]
